FAERS Safety Report 16702252 (Version 3)
Quarter: 2019Q4

REPORT INFORMATION
  Report Type: Spontaneous
  Country: US (occurrence: US)
  Receive Date: 20190814
  Receipt Date: 20191104
  Transmission Date: 20200122
  Serious: No
  Sender: FDA-Public Use
  Company Number: US-PFIZER INC-2019345990

PATIENT
  Age: 80 Year
  Sex: Female
  Weight: 58.96 kg

DRUGS (6)
  1. MELOXICAM. [Suspect]
     Active Substance: MELOXICAM
     Dosage: UNK
  2. TYLENOL [Concomitant]
     Active Substance: ACETAMINOPHEN
     Indication: PAIN
     Dosage: 500 MG, UNK
  3. RELAFEN [Suspect]
     Active Substance: NABUMETONE
     Dosage: UNK
  4. DICLOFENAC EPOLAMINE [Suspect]
     Active Substance: DICLOFENAC EPOLAMINE
     Indication: ARTHRITIS
     Dosage: UNK
  5. DIFLUNISAL. [Suspect]
     Active Substance: DIFLUNISAL
     Dosage: UNK
  6. ROSUVASTATIN. [Suspect]
     Active Substance: ROSUVASTATIN
     Dosage: UNK

REACTIONS (3)
  - Off label use [Unknown]
  - Blood pressure increased [Unknown]
  - Product use in unapproved indication [Unknown]
